FAERS Safety Report 8352021-4 (Version None)
Quarter: 2012Q2

REPORT INFORMATION
  Report Type: 
  Country: None (occurrence: None)
  Receive Date: 20120510
  Receipt Date: 20120510
  Transmission Date: 20120825
  Serious: No
  Sender: FDA-Public Use
  Company Number: None

PATIENT
  Age: 65 Year
  Sex: Male
  Weight: 104.5 kg

DRUGS (1)
  1. NIASPAN [Suspect]
     Indication: HYPERLIPIDAEMIA
     Dosage: 500 MG AT BEDTIME PO
     Route: 048

REACTIONS (6)
  - RASH [None]
  - URTICARIA [None]
  - SWELLING FACE [None]
  - SWOLLEN TONGUE [None]
  - PRURITUS [None]
  - ANGIOEDEMA [None]
